FAERS Safety Report 18986806 (Version 1)
Quarter: 2021Q1

REPORT INFORMATION
  Report Type: Spontaneous
  Country: US (occurrence: US)
  Receive Date: 20210308
  Receipt Date: 20210308
  Transmission Date: 20210420
  Serious: Yes (Hospitalization)
  Sender: FDA-Public Use
  Company Number: None

PATIENT
  Age: 69 Year
  Sex: Male
  Weight: 77 kg

DRUGS (2)
  1. DEXTROSE/HEPARIN (HEPARIN NA 40UNT/ML/DEXTROSE 5% INJ) [Suspect]
     Active Substance: DEXTROSE\HEPARIN SODIUM
     Indication: ATRIAL FIBRILLATION
     Route: 042
     Dates: start: 20201028, end: 20201030
  2. DEXTROSE/HEPARIN (HEPARIN NA 40UNT/ML/DEXTROSE 5% INJ) [Suspect]
     Active Substance: DEXTROSE\HEPARIN SODIUM
     Indication: VASCULAR OPERATION
     Route: 042
     Dates: start: 20201028, end: 20201030

REACTIONS (3)
  - Gastritis [None]
  - Anaemia [None]
  - Duodenal ulcer [None]

NARRATIVE: CASE EVENT DATE: 20201030
